FAERS Safety Report 6151000-5 (Version None)
Quarter: 2009Q2

REPORT INFORMATION
  Report Type: 
  Country: None (occurrence: None)
  Receive Date: 20090410
  Receipt Date: 20090213
  Transmission Date: 20091009
  Serious: No
  Sender: FDA-Public Use
  Company Number: A0768486A

PATIENT
  Age: 60 Year
  Sex: Female

DRUGS (4)
  1. TYKERB [Suspect]
     Indication: BREAST CANCER
     Dosage: 1250MG PER DAY
     Route: 048
     Dates: start: 20090130, end: 20090209
  2. IBUPROFEN [Concomitant]
  3. UNSPECIFIED HYPOTHYROID MEDICATION [Concomitant]
  4. BLOOD PRESSURE MEDICATION [Concomitant]

REACTIONS (9)
  - ACNE [None]
  - ASTHENIA [None]
  - DIARRHOEA [None]
  - DYSURIA [None]
  - EPISTAXIS [None]
  - ILL-DEFINED DISORDER [None]
  - MOUTH ULCERATION [None]
  - NASAL ULCER [None]
  - PH URINE DECREASED [None]
